FAERS Safety Report 9109996 (Version 1)
Quarter: 2013Q1

REPORT INFORMATION
  Report Type: Spontaneous
  Country: US (occurrence: US)
  Receive Date: 20130222
  Receipt Date: 20130222
  Transmission Date: 20140127
  Serious: Yes (Other)
  Sender: FDA-Public Use
  Company Number: US-PFIZER INC-2013065223

PATIENT
  Age: 71 Year
  Sex: Female
  Weight: 63.5 kg

DRUGS (3)
  1. XELJANZ [Suspect]
     Indication: ARTHRITIS
     Dosage: 5 MG, (ONCE AT BREAKFAST AND ONCE AT DINNER) 2X/DAY
     Dates: start: 20130124
  2. XELJANZ [Suspect]
     Dosage: 5 MG DAILY
     Dates: start: 2013, end: 201302
  3. PREDNISONE [Concomitant]
     Indication: ARTHRITIS
     Dosage: 20MG DAILY

REACTIONS (6)
  - Haemorrhage [Recovering/Resolving]
  - Abdominal pain upper [Recovering/Resolving]
  - Gastrooesophageal reflux disease [Recovering/Resolving]
  - Dyspepsia [Recovering/Resolving]
  - Myalgia [Recovering/Resolving]
  - Fatigue [Recovering/Resolving]
